FAERS Safety Report 21777314 (Version 1)
Quarter: 2022Q4

REPORT INFORMATION
  Report Type: Spontaneous
  Country: AU (occurrence: None)
  Receive Date: 20221226
  Receipt Date: 20221226
  Transmission Date: 20230113
  Serious: Yes (Hospitalization)
  Sender: FDA-Public Use
  Company Number: AU-PFIZER INC-PV202200126688

PATIENT
  Age: 79 Year
  Sex: Female
  Weight: 62 kg

DRUGS (12)
  1. METHOTREXATE [Suspect]
     Active Substance: METHOTREXATE
     Indication: Crohn^s disease
     Route: 065
  2. METHOTREXATE [Suspect]
     Active Substance: METHOTREXATE
     Route: 065
     Dates: start: 20220602
  3. INFLIXIMAB [Concomitant]
     Active Substance: INFLIXIMAB
     Indication: Crohn^s disease
     Dosage: Q4W (4 WEEKLY)
     Route: 065
  4. ASPIRIN [Concomitant]
     Active Substance: ASPIRIN
     Route: 065
  5. CANDESARTAN [Concomitant]
     Active Substance: CANDESARTAN
     Route: 065
  6. FONAT PLUS [Concomitant]
     Route: 065
  7. FOLATE SODIUM [Concomitant]
     Active Substance: FOLATE SODIUM
     Dosage: 6 DAYS A WEEK
     Route: 065
  8. BUDESONIDE [Concomitant]
     Active Substance: BUDESONIDE
     Route: 065
  9. BUDESONIDE [Concomitant]
     Active Substance: BUDESONIDE
     Dosage: NIGHTLY
     Route: 065
     Dates: end: 2022
  10. MESALAMINE [Concomitant]
     Active Substance: MESALAMINE
     Route: 065
  11. MESALAMINE [Concomitant]
     Active Substance: MESALAMINE
     Route: 065
  12. NORMAFIBE [Concomitant]
     Dosage: IN THE AM
     Route: 065

REACTIONS (4)
  - Crohn^s disease [Unknown]
  - Pyrexia [Unknown]
  - Tachycardia [Unknown]
  - Product use in unapproved indication [Unknown]

NARRATIVE: CASE EVENT DATE: 20221215
